FAERS Safety Report 22162649 (Version 1)
Quarter: 2023Q1

REPORT INFORMATION
  Report Type: Other
  Country: US (occurrence: None)
  Receive Date: 20230331
  Receipt Date: 20230331
  Transmission Date: 20230418
  Serious: Yes (Other)
  Sender: FDA-Public Use
  Company Number: US-ROCHE-3322501

PATIENT
  Age: 73 Year

DRUGS (2)
  1. RITUXIMAB [Suspect]
     Active Substance: RITUXIMAB
     Indication: Diffuse large B-cell lymphoma
     Route: 065
  2. RITUXIMAB [Suspect]
     Active Substance: RITUXIMAB
     Indication: B-cell small lymphocytic lymphoma

REACTIONS (5)
  - Pruritus [Unknown]
  - Chest discomfort [Unknown]
  - Hypoaesthesia [Unknown]
  - Chills [Unknown]
  - Neurotoxicity [Unknown]
